FAERS Safety Report 9720602 (Version 1)
Quarter: 2013Q4

REPORT INFORMATION
  Report Type: Spontaneous
  Country: US (occurrence: US)
  Receive Date: 20131129
  Receipt Date: 20131129
  Transmission Date: 20140711
  Serious: No
  Sender: FDA-Public Use
  Company Number: PHEH2013US024462

PATIENT
  Sex: Female

DRUGS (6)
  1. TASIGNA [Suspect]
     Dosage: 800 MG, UNK
  2. GLEEVEC [Suspect]
  3. INTERFERON [Suspect]
  4. SPRYCEL//DASATINIB [Suspect]
  5. XANAX [Concomitant]
  6. PAXIL//PAROXETINE HYDROCHLORIDE [Concomitant]

REACTIONS (1)
  - Palpitations [Unknown]
